FAERS Safety Report 9411793 (Version 1)
Quarter: 2013Q3

REPORT INFORMATION
  Report Type: Spontaneous
  Country: US (occurrence: US)
  Receive Date: 20130722
  Receipt Date: 20130722
  Transmission Date: 20140515
  Serious: No
  Sender: FDA-Public Use
  Company Number: US-PFIZER INC-2013211163

PATIENT
  Age: 65 Year
  Sex: Female

DRUGS (1)
  1. INLYTA [Suspect]
     Indication: NEOPLASM MALIGNANT
     Dosage: 5 MG, 2X/DAY
     Route: 048
     Dates: start: 201305

REACTIONS (1)
  - Pain in extremity [Recovering/Resolving]
